FAERS Safety Report 7153786-X (Version None)
Quarter: 2010Q4

REPORT INFORMATION
  Report Type: 
  Country: None (occurrence: None)
  Receive Date: 20101123
  Receipt Date: 20101013
  Transmission Date: 20110411
  Serious: No
  Sender: FDA-Public Use
  Company Number: 020330

PATIENT
  Sex: Female
  Weight: 64.9 kg

DRUGS (3)
  1. CIMZIA [Suspect]
     Indication: CROHN'S DISEASE
     Dosage: (400 MG 1X/28 SUBCUTANEOUS)
     Route: 058
     Dates: start: 20081201, end: 20100601
  2. ALEVE [Concomitant]
  3. DARVOCET [Concomitant]

REACTIONS (4)
  - ARTHRALGIA [None]
  - FAECAL INCONTINENCE [None]
  - FATIGUE [None]
  - INSOMNIA [None]
